FAERS Safety Report 5849529-X (Version None)
Quarter: 2008Q3

REPORT INFORMATION
  Report Type: 
  Country: None (occurrence: None)
  Receive Date: 20080819
  Receipt Date: 20080808
  Transmission Date: 20090109
  Serious: Yes (Other)
  Sender: FDA-Public Use
  Company Number: B0532501A

PATIENT
  Age: 64 Year
  Sex: Female

DRUGS (6)
  1. AUGMENTIN [Suspect]
     Indication: DRUG USE FOR UNKNOWN INDICATION
     Route: 048
     Dates: start: 20080411, end: 20080411
  2. SYMBICORT [Concomitant]
     Indication: BRONCHOPNEUMOPATHY
     Route: 065
  3. SPIRIVA [Concomitant]
     Indication: BRONCHOPNEUMOPATHY
     Route: 065
  4. ISOPTIN [Concomitant]
     Route: 065
  5. TAREG [Concomitant]
     Route: 065
  6. TAHOR [Concomitant]
     Route: 065

REACTIONS (7)
  - ANAPHYLACTIC REACTION [None]
  - DRUG HYPERSENSITIVITY [None]
  - FACE OEDEMA [None]
  - LARYNGEAL OEDEMA [None]
  - MALAISE [None]
  - PRURITUS [None]
  - URTICARIA [None]
